FAERS Safety Report 15959529 (Version 1)
Quarter: 2019Q1

REPORT INFORMATION
  Report Type: Spontaneous
  Country: GB (occurrence: GB)
  Receive Date: 20190214
  Receipt Date: 20190214
  Transmission Date: 20190417
  Serious: Yes (Death, Other)
  Sender: FDA-Public Use
  Company Number: GB-ACCORD-106338

PATIENT
  Age: 89 Year
  Sex: Male
  Weight: 88.9 kg

DRUGS (7)
  1. RAMIPRIL. [Concomitant]
     Active Substance: RAMIPRIL
  2. IRON [Concomitant]
     Active Substance: IRON
  3. NUELIN [Concomitant]
  4. OLANZAPINE. [Concomitant]
     Active Substance: OLANZAPINE
  5. FOLIC ACID. [Concomitant]
     Active Substance: FOLIC ACID
  6. SERTRALINE [Concomitant]
     Active Substance: SERTRALINE HYDROCHLORIDE
  7. ONDANSETRON [Suspect]
     Active Substance: ONDANSETRON
     Indication: NAUSEA
     Route: 051

REACTIONS (4)
  - Renal failure [Unknown]
  - Loss of consciousness [Not Recovered/Not Resolved]
  - Death [Fatal]
  - Cardiac failure [Unknown]
